FAERS Safety Report 4437026-8 (Version None)
Quarter: 2004Q3

REPORT INFORMATION
  Report Type: 
  Country: None (occurrence: None)
  Receive Date: 20040830
  Receipt Date: 20030407
  Transmission Date: 20050211
  Serious: Yes (Hospitalization, Disabling, Other)
  Sender: FDA-Public Use
  Company Number: US-MERCK-0304USA00753

PATIENT
  Age: 51 Year
  Sex: Male
  Weight: 118 kg

DRUGS (15)
  1. ATENOLOL [Concomitant]
     Route: 065
  2. ZYRTEC [Concomitant]
     Route: 065
     Dates: start: 19950101
  3. CELEXA [Concomitant]
     Route: 065
     Dates: start: 19990101
  4. FLONASE [Concomitant]
     Route: 065
  5. HYDROCODONE BITARTRATE [Concomitant]
     Indication: BACK PAIN
     Route: 065
     Dates: end: 20000822
  6. LEVSIN PB [Concomitant]
     Route: 065
     Dates: end: 20000822
  7. INDOCIN [Concomitant]
     Route: 048
     Dates: start: 19820101
  8. NAPROXEN [Concomitant]
     Route: 065
     Dates: start: 19820101
  9. PRILOSEC [Concomitant]
     Route: 065
  10. OXYCONTIN [Concomitant]
     Route: 065
     Dates: start: 20000101, end: 20020101
  11. ACIPHEX [Concomitant]
     Route: 065
     Dates: start: 19990101
  12. VIOXX [Suspect]
     Indication: OSTEOARTHRITIS
     Route: 048
     Dates: start: 20000201, end: 20000822
  13. VIOXX [Suspect]
     Route: 048
     Dates: start: 20010101
  14. VIOXX [Suspect]
     Indication: BACK PAIN
     Route: 048
     Dates: start: 20000201, end: 20000822
  15. VIOXX [Suspect]
     Route: 048
     Dates: start: 20010101

REACTIONS (16)
  - ACUTE MYOCARDIAL INFARCTION [None]
  - ANGINA PECTORIS [None]
  - ARTHRALGIA [None]
  - ASTHENIA [None]
  - CARPAL TUNNEL SYNDROME [None]
  - CORONARY ARTERY ATHEROSCLEROSIS [None]
  - DRUG INEFFECTIVE [None]
  - DYSLIPIDAEMIA [None]
  - FALL [None]
  - MUSCULAR WEAKNESS [None]
  - PERIPHERAL COLDNESS [None]
  - ROAD TRAFFIC ACCIDENT [None]
  - ROTATOR CUFF SYNDROME [None]
  - SCAPULA FRACTURE [None]
  - SKIN LACERATION [None]
  - TRIGGER FINGER [None]
